FAERS Safety Report 22707501 (Version 4)
Quarter: 2024Q3

REPORT INFORMATION
  Report Type: Report from Study
  Country: JP (occurrence: JP)
  Receive Date: 20230714
  Receipt Date: 20240823
  Transmission Date: 20241017
  Serious: Yes (Death, Life-Threatening, Hospitalization, Other)
  Sender: BRISTOL MYERS SQUIBB
  Company Number: JP-ASTRAZENECA-230045543_013120_P_1

PATIENT
  Age: 77 Year
  Sex: Male

DRUGS (4)
  1. ABRAXANE [Suspect]
     Active Substance: PACLITAXEL
     Indication: Non-small cell lung cancer
     Dosage: ONCE A WEEK
     Route: 042
     Dates: start: 20230522, end: 20230605
  2. CARBOPLATIN [Suspect]
     Active Substance: CARBOPLATIN
     Indication: Non-small cell lung cancer
     Route: 042
     Dates: start: 20230522
  3. DURVALUMAB [Suspect]
     Active Substance: DURVALUMAB
     Indication: Non-small cell lung cancer
     Route: 041
     Dates: start: 20230522, end: 20230522
  4. TREMELIMUMAB [Suspect]
     Active Substance: TREMELIMUMAB
     Indication: Non-small cell lung cancer
     Route: 041
     Dates: start: 20230522, end: 20230522

REACTIONS (8)
  - Febrile neutropenia [Recovering/Resolving]
  - Pneumonia [Recovered/Resolved]
  - Blood thyroid stimulating hormone decreased [Not Recovered/Not Resolved]
  - Septic shock [Fatal]
  - Sepsis [Fatal]
  - Empyema [Fatal]
  - Pneumonitis [Fatal]
  - Fibrosis [Fatal]

NARRATIVE: CASE EVENT DATE: 20230613
